FAERS Safety Report 6438212-8 (Version None)
Quarter: 2009Q4

REPORT INFORMATION
  Report Type: 
  Country: None (occurrence: None)
  Receive Date: 20091112
  Receipt Date: 20091031
  Transmission Date: 20100525
  Serious: Yes (Death, Life-Threatening, Hospitalization)
  Sender: FDA-Public Use
  Company Number: US-PFIZER INC-2009291375

PATIENT
  Sex: Male
  Weight: 59 kg

DRUGS (1)
  1. SUNITINIB MALATE [Suspect]
     Indication: METASTASIS
     Dosage: 25 MG, 1X/DAY
     Route: 048
     Dates: start: 20091001, end: 20091012

REACTIONS (1)
  - GASTROINTESTINAL HAEMORRHAGE [None]
